FAERS Safety Report 10093564 (Version 1)
Quarter: 2014Q2

REPORT INFORMATION
  Report Type: Spontaneous
  Country: US (occurrence: US)
  Receive Date: 20140421
  Receipt Date: 20140421
  Transmission Date: 20141212
  Serious: No
  Sender: FDA-Public Use
  Company Number: US-SANOFI-AVENTIS-2013SA078803

PATIENT
  Age: 84 Year
  Sex: Female

DRUGS (2)
  1. ALLEGRA [Suspect]
     Indication: RHINORRHOEA
     Route: 065
  2. ALLEGRA [Suspect]
     Indication: COUGH
     Route: 065

REACTIONS (2)
  - Wrong technique in drug usage process [Unknown]
  - Inappropriate schedule of drug administration [Unknown]
